FAERS Safety Report 5487482-1 (Version None)
Quarter: 2007Q4

REPORT INFORMATION
  Report Type: 
  Country: None (occurrence: None)
  Receive Date: 20071015
  Receipt Date: 20071001
  Transmission Date: 20080405
  Serious: Yes (Death)
  Sender: FDA-Public Use
  Company Number: GXKR2007AU08481

PATIENT
  Age: 78 Year
  Sex: Male

DRUGS (3)
  1. PRAVASTATIN [Suspect]
     Dosage: 40 MG
  2. ACETYLSALICYLIC ACID SRT [Concomitant]
  3. FUROSEMIDE [Concomitant]

REACTIONS (4)
  - EMPHYSEMA [None]
  - INTERSTITIAL LUNG DISEASE [None]
  - PULMONARY FIBROSIS [None]
  - RESPIRATORY FAILURE [None]
